FAERS Safety Report 7271604-6 (Version None)
Quarter: 2011Q1

REPORT INFORMATION
  Report Type: 
  Country: None (occurrence: None)
  Receive Date: 20110128
  Receipt Date: 20110128
  Transmission Date: 20110831
  Serious: Yes (Other)
  Sender: FDA-Public Use
  Company Number: None

PATIENT
  Age: 40 Year
  Sex: Female
  Weight: 65.7716 kg

DRUGS (2)
  1. WELLBUTRIN XL [Suspect]
     Indication: DEPRESSION
     Dosage: 300MG 1X/DAY PO
     Route: 048
     Dates: start: 19970301, end: 20070601
  2. BUPROPION HCL [Suspect]
     Indication: DEPRESSION
     Dosage: 300MG 1X/DAY PO
     Route: 048
     Dates: start: 20070601, end: 20070701

REACTIONS (9)
  - DISEASE RECURRENCE [None]
  - MUSCLE TIGHTNESS [None]
  - NECK PAIN [None]
  - PRODUCT SUBSTITUTION ISSUE [None]
  - DEPRESSION [None]
  - INSOMNIA [None]
  - SUICIDAL IDEATION [None]
  - DRUG INEFFECTIVE [None]
  - MUSCULOSKELETAL PAIN [None]
